FAERS Safety Report 6701913-8 (Version None)
Quarter: 2010Q2

REPORT INFORMATION
  Report Type: 
  Country: None (occurrence: None)
  Receive Date: 20100429
  Receipt Date: 20100419
  Transmission Date: 20101027
  Serious: Yes (Other)
  Sender: FDA-Public Use
  Company Number: FR-PFIZER INC-2010048750

PATIENT
  Age: 26 Year
  Sex: Male

DRUGS (3)
  1. XANAX [Suspect]
     Indication: ANXIETY
     Dosage: 0.25 MG, AS NEEDED
  2. XANAX [Suspect]
     Dosage: 0.25 MG/DAY
     Dates: start: 20100401, end: 20100401
  3. XANAX [Suspect]
     Dosage: 0.25 MG IN THE MORNING AND 0.125MG AT 2.00 PM
     Dates: start: 20100418

REACTIONS (2)
  - ANXIETY [None]
  - VISUAL FIELD DEFECT [None]
